FAERS Safety Report 5775720-7 (Version None)
Quarter: 2008Q2

REPORT INFORMATION
  Report Type: 
  Country: None (occurrence: None)
  Receive Date: 20080612
  Receipt Date: 20080528
  Transmission Date: 20081010
  Serious: Yes (Other)
  Sender: FDA-Public Use
  Company Number: 2008S1009032

PATIENT
  Age: 58 Year
  Sex: Female

DRUGS (1)
  1. WARFARIN SODIUM [Suspect]
     Indication: ATRIAL FIBRILLATION

REACTIONS (14)
  - ABDOMINAL DISCOMFORT [None]
  - ANTINUCLEAR ANTIBODY INCREASED [None]
  - C-REACTIVE PROTEIN INCREASED [None]
  - CALCIPHYLAXIS [None]
  - DISCOMFORT [None]
  - DRUG EFFECT DECREASED [None]
  - HAEMOGLOBIN DECREASED [None]
  - LIVEDO RETICULARIS [None]
  - PAIN IN EXTREMITY [None]
  - PALLOR [None]
  - SCAB [None]
  - SKIN DISCOLOURATION [None]
  - SKIN NECROSIS [None]
  - SKIN ULCER [None]
